FAERS Safety Report 8319276-3 (Version None)
Quarter: 2012Q2

REPORT INFORMATION
  Report Type: 
  Country: None (occurrence: None)
  Receive Date: 20120427
  Receipt Date: 20090903
  Transmission Date: 20120825
  Serious: No
  Sender: FDA-Public Use
  Company Number: US-TEVA-2009010133

PATIENT
  Sex: Female
  Weight: 107.6 kg

DRUGS (11)
  1. FLONASE [Concomitant]
     Indication: HYPERSENSITIVITY
  2. HYDROCHLOROTHIAZIDE [Concomitant]
     Indication: HYPERTENSION
  3. NUVIGIL [Suspect]
     Dosage: 250 MILLIGRAM;
     Route: 048
     Dates: start: 20090729, end: 20090730
  4. NUVIGIL [Suspect]
     Indication: SLEEP APNOEA SYNDROME
     Dosage: 150 MILLIGRAM;
     Route: 048
     Dates: start: 20090616, end: 20090726
  5. PRILOSEC [Concomitant]
     Indication: GASTROOESOPHAGEAL REFLUX DISEASE
     Dates: start: 20080101
  6. NUVIGIL [Suspect]
     Dosage: 225 MILLIGRAM;
     Route: 048
     Dates: start: 20090727, end: 20090728
  7. ASTELIN [Concomitant]
     Indication: HYPERSENSITIVITY
  8. LEXAPRO [Concomitant]
     Indication: DEPRESSION
     Dates: start: 20080101
  9. LEVOTHYROXINE SODIUM [Concomitant]
     Indication: THYROID DISORDER
  10. ADVAIR DISKUS 100/50 [Concomitant]
     Indication: ASTHMA
  11. ADDERALL 5 [Concomitant]
     Indication: SOMNOLENCE
     Dates: start: 20080101

REACTIONS (1)
  - RASH [None]
